FAERS Safety Report 8926614 (Version 2)
Quarter: 2013Q1

REPORT INFORMATION
  Report Type: Report from Study
  Country: SE (occurrence: SE)
  Receive Date: 20121127
  Receipt Date: 20130211
  Transmission Date: 20140127
  Serious: Yes (Hospitalization)
  Sender: FDA-Public Use
  Company Number: SE-PFIZER INC-2012291944

PATIENT
  Age: 56 Year
  Sex: Male
  Weight: 112 kg

DRUGS (20)
  1. SOMAVERT [Suspect]
     Indication: ACROMEGALY
     Dosage: 20 MG, 1X/DAY, 7 INJECTIONS/WEEK
     Dates: start: 20040623
  2. FELODIPINE [Concomitant]
     Indication: HYPERTENSION
     Dosage: UNK
     Dates: start: 20070131, end: 201206
  3. FELODIPINE [Concomitant]
     Dosage: UNK
     Dates: start: 20070830, end: 201206
  4. HYDROCHLOROTHIAZIDE [Concomitant]
     Indication: HYPERTENSION
     Dosage: UNK
     Dates: start: 20050829, end: 201206
  5. HYDROCHLOROTHIAZIDE [Concomitant]
     Dosage: UNK
     Dates: start: 20060301, end: 201206
  6. WARFARIN [Concomitant]
     Dosage: UNK
     Dates: start: 20100914
  7. TESTOSTERONE [Concomitant]
     Indication: BLOOD FOLLICLE STIMULATING HORMONE DECREASED
     Dosage: UNK
     Dates: start: 20050829
  8. TESTOSTERONE [Concomitant]
     Indication: BLOOD LUTEINISING HORMONE DECREASED
     Dosage: UNK
     Dates: start: 20060301
  9. TESTOSTERONE [Concomitant]
     Dosage: UNK
     Dates: start: 20060830
  10. TESTOSTERONE [Concomitant]
     Dosage: UNK
     Dates: start: 20070131
  11. TESTOSTERONE [Concomitant]
     Dosage: UNK
     Dates: start: 20070830
  12. TESTOSTERONE [Concomitant]
     Dosage: UNK
     Dates: start: 20100914
  13. HYDROCORTISONE [Concomitant]
     Indication: BLOOD CORTICOTROPHIN DECREASED
     Dosage: UNK
     Dates: start: 20050829
  14. HYDROCORTISONE [Concomitant]
     Dosage: UNK
     Dates: start: 20060301
  15. HYDROCORTISONE [Concomitant]
     Dosage: UNK
     Dates: start: 20060830
  16. HYDROCORTISONE [Concomitant]
     Dosage: UNK
     Dates: start: 20070131
  17. GLUCOSAMINE [Concomitant]
     Indication: OSTEOARTHRITIS
     Dosage: UNK
     Dates: start: 20050829
  18. GLUCOSAMINE [Concomitant]
     Dosage: UNK
     Dates: start: 20060301
  19. LEVOTHYROXINE [Concomitant]
     Indication: BLOOD THYROID STIMULATING HORMONE DECREASED
     Dosage: UNK
     Dates: start: 20050829
  20. LANREOTIDE [Concomitant]
     Dosage: UNK
     Dates: start: 20100310

REACTIONS (1)
  - Cholecystitis [Recovered/Resolved]
